FAERS Safety Report 7866820-6 (Version None)
Quarter: 2011Q4

REPORT INFORMATION
  Report Type: 
  Country: None (occurrence: None)
  Receive Date: 20111028
  Receipt Date: 20110829
  Transmission Date: 20120403
  Serious: No
  Sender: FDA-Public Use
  Company Number: US-GLAXOSMITHKLINE-A0942720A

PATIENT
  Age: 81 Year
  Sex: Female

DRUGS (3)
  1. LEVOXYL [Concomitant]
  2. PREDNISONE [Concomitant]
  3. ADVAIR DISKUS 100/50 [Suspect]
     Indication: DYSPNOEA
     Dosage: 1PUFF TWICE PER DAY
     Route: 055
     Dates: start: 20110816

REACTIONS (4)
  - DRUG INEFFECTIVE [None]
  - ORAL PAIN [None]
  - DYSPHONIA [None]
  - IRRITABLE BOWEL SYNDROME [None]
